FAERS Safety Report 8982282 (Version 1)
Quarter: 2012Q4

REPORT INFORMATION
  Report Type: 
  Country: SE (occurrence: SE)
  Receive Date: 20121222
  Receipt Date: 20121222
  Transmission Date: 20130627
  Serious: Yes (Hospitalization)
  Sender: FDA-Public Use
  Company Number: SE-B.I. PHARMACEUTICALS,INC./RIDGEFIELD-2012-SW-00939SW

PATIENT
  Age: 68 Year
  Sex: Female

DRUGS (8)
  1. PRADAXA [Suspect]
     Indication: ATRIAL FIBRILLATION
     Dosage: 300 mg
     Dates: start: 201111
  2. OMEPRAZOL [Concomitant]
     Indication: GASTRIC ULCER
     Dosage: 40 mg
     Dates: start: 201206
  3. BEHEPAN [Concomitant]
     Indication: ANAEMIA
     Dates: start: 201211
  4. DIGOXIN [Concomitant]
     Indication: CARDIAC DISORDER
     Dosage: strength; unit not reported
     Dates: start: 20121210
  5. SELOKEN SOC [Concomitant]
     Indication: CARDIAC DISORDER
     Dates: start: 201111
  6. LIPITOR [Concomitant]
     Indication: LIPIDS INCREASED
  7. NOVORAPID [Concomitant]
     Indication: DIABETES MELLITUS
     Dosage: formulation: ins
  8. LANTUS [Concomitant]
     Indication: DIABETES MELLITUS
     Dosage: formulation; ins

REACTIONS (1)
  - Palpitations [Recovered/Resolved]
